FAERS Safety Report 5961510-9 (Version None)
Quarter: 2008Q4

REPORT INFORMATION
  Report Type: 
  Country: None (occurrence: None)
  Receive Date: 20081121
  Receipt Date: 20081114
  Transmission Date: 20090506
  Serious: Yes (Other)
  Sender: FDA-Public Use
  Company Number: GR-JNJFOC-20081001002

PATIENT
  Sex: Female

DRUGS (7)
  1. RISPERDAL [Suspect]
     Route: 048
  2. RISPERDAL [Suspect]
     Dosage: 4-10MG DAILY
     Route: 048
  3. RISPERDAL [Suspect]
     Indication: MENTAL DISORDER
     Route: 048
  4. AKINETON [Concomitant]
     Route: 065
  5. METHOTREXATE [Concomitant]
     Route: 065
  6. PLAQUENIL [Concomitant]
     Route: 065
  7. IRON [Concomitant]
     Route: 065

REACTIONS (1)
  - INTRACRANIAL PRESSURE INCREASED [None]
